FAERS Safety Report 8202734-X (Version None)
Quarter: 2012Q1

REPORT INFORMATION
  Report Type: 
  Country: None (occurrence: None)
  Receive Date: 20120312
  Receipt Date: 20120308
  Transmission Date: 20120608
  Serious: Yes (Other)
  Sender: FDA-Public Use
  Company Number: US-PFIZER INC-2012045414

PATIENT
  Sex: Female
  Weight: 75.7 kg

DRUGS (6)
  1. FLEXERIL [Concomitant]
     Indication: MUSCLE DISORDER
     Dosage: UNK
  2. CHANTIX [Suspect]
     Indication: SMOKING CESSATION THERAPY
     Dosage: 0.5 MG, DAILY
     Route: 048
     Dates: start: 20120201, end: 20120201
  3. SPIRIVA [Suspect]
     Indication: CHRONIC OBSTRUCTIVE PULMONARY DISEASE
     Dosage: UNK, DAILY
     Dates: start: 20100101
  4. DULERA ORAL INHALATION [Suspect]
     Indication: CHRONIC OBSTRUCTIVE PULMONARY DISEASE
     Dosage: UNK
     Dates: start: 20110101
  5. NEXIUM [Concomitant]
     Indication: GASTROOESOPHAGEAL REFLUX DISEASE
     Dosage: UNK
  6. CHANTIX [Suspect]
     Dosage: 0.5 MG, 2X/DAY
     Route: 048
     Dates: start: 20120201, end: 20120207

REACTIONS (5)
  - DRUG INEFFECTIVE [None]
  - PNEUMONIA [None]
  - VITAMIN B12 DEFICIENCY [None]
  - CHRONIC OBSTRUCTIVE PULMONARY DISEASE [None]
  - WEIGHT INCREASED [None]
